FAERS Safety Report 4829952-2 (Version None)
Quarter: 2005Q4

REPORT INFORMATION
  Report Type: 
  Country: None (occurrence: None)
  Receive Date: 20051115
  Receipt Date: 20051115
  Transmission Date: 20060501
  Serious: Yes (Death, Life-Threatening, Hospitalization)
  Sender: FDA-Public Use
  Company Number: None

PATIENT
  Age: 47 Year
  Sex: Male
  Weight: 72.5755 kg

DRUGS (1)
  1. ENBREL [Suspect]
     Indication: PSORIASIS
     Dosage: 2X /WEEK
     Dates: start: 20030301, end: 20040301

REACTIONS (3)
  - GASTRIC CANCER [None]
  - METASTASES TO BONE [None]
  - OESOPHAGEAL CARCINOMA [None]
